FAERS Safety Report 16497483 (Version 3)
Quarter: 2019Q3

REPORT INFORMATION
  Report Type: Spontaneous
  Country: US (occurrence: US)
  Receive Date: 20190628
  Receipt Date: 20190724
  Transmission Date: 20191004
  Serious: Yes (Hospitalization, Other)
  Sender: FDA-Public Use
  Company Number: US-ALLERGAN-1924073US

PATIENT
  Sex: Female

DRUGS (9)
  1. VIIBRYD [Suspect]
     Active Substance: VILAZODONE HYDROCHLORIDE
     Indication: MAJOR DEPRESSION
     Dosage: 60 MG, QAM
     Route: 048
     Dates: start: 2017, end: 201901
  2. TOPAMAX [Suspect]
     Active Substance: TOPIRAMATE
     Indication: MIGRAINE
     Dosage: 100 MG, QD
     Route: 048
  3. FIORICET WITH CODEINE [Concomitant]
     Active Substance: ACETAMINOPHEN\BUTALBITAL\CAFFEINE\CODEINE PHOSPHATE
     Indication: MIGRAINE
     Dosage: UNK, Q6HR
  4. FIORICET WITH CODEINE [Concomitant]
     Active Substance: ACETAMINOPHEN\BUTALBITAL\CAFFEINE\CODEINE PHOSPHATE
     Indication: HEADACHE
  5. TOPAMAX [Suspect]
     Active Substance: TOPIRAMATE
     Dosage: 200 MG, QHS
     Route: 048
  6. BOTOX [Suspect]
     Active Substance: ONABOTULINUMTOXINA
     Indication: MIGRAINE
     Dosage: 200 UNITS, SINGLE
     Route: 065
     Dates: start: 201810, end: 201810
  7. VALIUM [Concomitant]
     Active Substance: DIAZEPAM
     Indication: ANXIETY
     Route: 048
  8. VRAYLAR [Suspect]
     Active Substance: CARIPRAZINE
     Indication: AFFECTIVE DISORDER
     Dosage: 1.5 MG, QHS
     Route: 048
     Dates: start: 2018, end: 201902
  9. BOTOX [Suspect]
     Active Substance: ONABOTULINUMTOXINA
     Dosage: 200 UNITS, SINGLE
     Route: 065
     Dates: start: 2014, end: 2014

REACTIONS (5)
  - Suicidal ideation [Not Recovered/Not Resolved]
  - Off label use [Unknown]
  - Product dose omission [Unknown]
  - Road traffic accident [Recovered/Resolved]
  - Suicide attempt [Recovered/Resolved]

NARRATIVE: CASE EVENT DATE: 201810
